FAERS Safety Report 15773999 (Version 1)
Quarter: 2018Q4

REPORT INFORMATION
  Report Type: Report from Study
  Country: None (occurrence: IL)
  Receive Date: 20181229
  Receipt Date: 20181229
  Transmission Date: 20190205
  Serious: Yes (Hospitalization)
  Sender: FDA-Public Use
  Company Number: IL-ABBVIE-18K-082-2605823-00

PATIENT
  Age: 66 Year
  Sex: Female

DRUGS (1)
  1. HUMIRA [Suspect]
     Active Substance: ADALIMUMAB
     Indication: ANKYLOSING SPONDYLITIS
     Route: 058
     Dates: start: 20180812

REACTIONS (4)
  - Joint swelling [Recovered/Resolved]
  - Tendonitis [Recovered/Resolved]
  - Peripheral swelling [Recovered/Resolved]
  - Erythema [Recovered/Resolved]

NARRATIVE: CASE EVENT DATE: 201808
